FAERS Safety Report 6144946-5 (Version None)
Quarter: 2009Q2

REPORT INFORMATION
  Report Type: 
  Country: None (occurrence: None)
  Receive Date: 20090406
  Receipt Date: 20090401
  Transmission Date: 20091009
  Serious: No
  Sender: FDA-Public Use
  Company Number: US-B.I. PHARMACEUTICALS,INC./RIDGEFIELD-2009-BP-04133BP

PATIENT
  Age: 80 Year
  Sex: Male

DRUGS (4)
  1. SPIRIVA [Suspect]
     Indication: BRONCHITIS
     Dosage: 18MCG
     Route: 055
     Dates: start: 20090218, end: 20090225
  2. SPIRIVA [Suspect]
     Indication: EMPHYSEMA
     Dosage: 18MCG
     Route: 055
     Dates: start: 20090301, end: 20090308
  3. ADVAIR HFA [Concomitant]
     Indication: EMPHYSEMA
     Dates: start: 20090218
  4. ADVAIR HFA [Concomitant]
     Indication: BRONCHITIS

REACTIONS (1)
  - EPISTAXIS [None]
